FAERS Safety Report 26193686 (Version 1)
Quarter: 2025Q4

REPORT INFORMATION
  Report Type: Spontaneous
  Country: JP (occurrence: JP)
  Receive Date: 20251224
  Receipt Date: 20251224
  Transmission Date: 20260118
  Serious: Yes (Death, Other)
  Sender: SERVIER
  Company Number: JP-SERVIER-S25018212

PATIENT

DRUGS (2)
  1. TIBSOVO [Suspect]
     Active Substance: IVOSIDENIB
     Indication: Acute myeloid leukaemia
     Dosage: 500 MG, QD
     Route: 048
     Dates: start: 20251204, end: 20251210
  2. AZACITIDINE [Concomitant]
     Active Substance: AZACITIDINE
     Indication: Acute myeloid leukaemia
     Dosage: UNK
     Route: 042
     Dates: start: 20251204, end: 20251210

REACTIONS (7)
  - Pneumonia [Fatal]
  - Pulmonary alveolar haemorrhage [Fatal]
  - Pulmonary oedema [Not Recovered/Not Resolved]
  - Oedema [Not Recovered/Not Resolved]
  - Renal impairment [Not Recovered/Not Resolved]
  - Pyrexia [Not Recovered/Not Resolved]
  - Differentiation syndrome [Not Recovered/Not Resolved]

NARRATIVE: CASE EVENT DATE: 20251201
